FAERS Safety Report 5829873-2 (Version None)
Quarter: 2008Q3

REPORT INFORMATION
  Report Type: 
  Country: None (occurrence: None)
  Receive Date: 20080724
  Receipt Date: 20080710
  Transmission Date: 20090109
  Serious: Yes (Hospitalization)
  Sender: FDA-Public Use
  Company Number: THYM-1000730

PATIENT
  Sex: Male

DRUGS (3)
  1. THYMOGLOBULIN [Suspect]
     Indication: KIDNEY TRANSPLANT REJECTION
     Dosage: 100 MG, QD, INTRAVENOUS
     Route: 042
     Dates: start: 20080628
  2. TACROLIMUS [Concomitant]
  3. PREDNISONE [Concomitant]

REACTIONS (1)
  - HYPERGLYCAEMIA [None]
